FAERS Safety Report 15329061 (Version 1)
Quarter: 2018Q4

REPORT INFORMATION
  Report Type: Spontaneous
  Country: DE (occurrence: DE)
  Receive Date: 20180829
  Receipt Date: 20180829
  Transmission Date: 20190204
  Serious: Yes (Other)
  Sender: FDA-Public Use
  Company Number: DE-AXELLIA-001893

PATIENT
  Age: 23 Year
  Sex: Female

DRUGS (6)
  1. CEFTAZIDIME/CEFTAZIDIME PENTAHYDRATE [Concomitant]
     Indication: KERATITIS FUNGAL
  2. VANCOMYCIN [Concomitant]
     Active Substance: VANCOMYCIN
     Indication: ENDOPHTHALMITIS
  3. TERBINAFINE/TERBINAFINE HYDROCHLORIDE [Suspect]
     Active Substance: TERBINAFINE HYDROCHLORIDE
     Indication: KERATITIS FUNGAL
     Dosage: 250 MG
     Route: 062
  4. AMPHOTERICIN B/AMPHOTERICIN B/LIPOSOME [Concomitant]
     Indication: KERATITIS FUNGAL
     Route: 031
  5. NATAMYCIN [Concomitant]
     Active Substance: NATAMYCIN
     Indication: KERATITIS FUNGAL
     Dosage: 5.0 %
     Route: 061
  6. VORICONAZOLE. [Suspect]
     Active Substance: VORICONAZOLE
     Indication: PRODUCT USED FOR UNKNOWN INDICATION

REACTIONS (2)
  - Pathogen resistance [Unknown]
  - Medication error [Unknown]
